FAERS Safety Report 9219017 (Version 1)
Quarter: 2013Q2

REPORT INFORMATION
  Report Type: Spontaneous
  Country: US (occurrence: None)
  Receive Date: 20130405
  Receipt Date: 20130405
  Transmission Date: 20140414
  Serious: Yes (Other)
  Sender: FDA-Public Use
  Company Number: None

PATIENT
  Age: 72 Year
  Sex: Male

DRUGS (1)
  1. ZELBORAF [Suspect]
     Route: 048
     Dates: start: 20121005, end: 20130305

REACTIONS (2)
  - Renal failure [None]
  - Pyrexia [None]
